FAERS Safety Report 23539972 (Version 1)
Quarter: 2024Q1

REPORT INFORMATION
  Report Type: Spontaneous
  Country: JP (occurrence: JP)
  Receive Date: 20240219
  Receipt Date: 20240219
  Transmission Date: 20240409
  Serious: Yes (Other)
  Sender: FDA-Public Use
  Company Number: JP-PFIZER INC-PV202400021105

PATIENT
  Age: 98 Year
  Sex: Female

DRUGS (5)
  1. PAXLOVID [Suspect]
     Active Substance: NIRMATRELVIR\RITONAVIR
     Indication: COVID-19 treatment
     Dosage: UNK
     Route: 048
  2. ENSITRELVIR FUMARATE [Suspect]
     Active Substance: ENSITRELVIR FUMARATE
     Indication: Antiviral treatment
     Dosage: UNK
     Route: 048
  3. ELOBIXIBAT [Concomitant]
     Active Substance: ELOBIXIBAT
     Indication: Constipation
     Route: 048
  4. ALFAROL [Concomitant]
     Active Substance: ALFACALCIDOL
     Indication: Osteoporosis
     Route: 048
  5. NAUZELIN [Concomitant]
     Active Substance: DOMPERIDONE
     Indication: Constipation
     Route: 048

REACTIONS (4)
  - COVID-19 pneumonia [Unknown]
  - Decreased appetite [Recovered/Resolved]
  - Restlessness [Unknown]
  - Blood pressure diastolic decreased [Unknown]

NARRATIVE: CASE EVENT DATE: 20240124
